FAERS Safety Report 5808098-0 (Version None)
Quarter: 2008Q3

REPORT INFORMATION
  Report Type: 
  Country: None (occurrence: None)
  Receive Date: 20080711
  Receipt Date: 20080701
  Transmission Date: 20090109
  Serious: Yes (Other)
  Sender: FDA-Public Use
  Company Number: US-PFIZER INC-2008055522

PATIENT
  Sex: Female
  Weight: 67.1 kg

DRUGS (6)
  1. DETROL LA [Suspect]
     Indication: MICTURITION DISORDER
  2. VESICARE [Suspect]
     Indication: MICTURITION DISORDER
  3. AMLODIPINE [Concomitant]
  4. SYNTHROID [Concomitant]
  5. ANASTROZOLE [Concomitant]
  6. ZETIA [Concomitant]

REACTIONS (3)
  - BLINDNESS UNILATERAL [None]
  - MACULAR DEGENERATION [None]
  - NOCTURIA [None]
